FAERS Safety Report 8761559 (Version 2)
Quarter: 2013Q2

REPORT INFORMATION
  Report Type: Spontaneous
  Country: US (occurrence: None)
  Receive Date: 20120821
  Receipt Date: 20130507
  Transmission Date: 20140414
  Serious: Yes (Death)
  Sender: FDA-Public Use
  Company Number: ADR-2012-01517

PATIENT
  Sex: Male

DRUGS (2)
  1. LIORESAL [Suspect]
     Indication: MUSCLE SPASTICITY
     Dosage: SEE B5
  2. LIORESAL [Suspect]
     Indication: CEREBRAL PALSY
     Dosage: SEE B5

REACTIONS (2)
  - Death [None]
  - Device damage [None]
